FAERS Safety Report 6134940-2 (Version None)
Quarter: 2009Q1

REPORT INFORMATION
  Report Type: 
  Country: None (occurrence: None)
  Receive Date: 20090325
  Receipt Date: 20090316
  Transmission Date: 20090719
  Serious: Yes (Other)
  Sender: FDA-Public Use
  Company Number: ADE2009-0489

PATIENT
  Age: 54 Year
  Sex: Female

DRUGS (1)
  1. RISPERIDONE [Suspect]
     Indication: SCHIZOPHRENIA

REACTIONS (5)
  - AMENORRHOEA [None]
  - GALACTORRHOEA [None]
  - HYPERPROLACTINAEMIA [None]
  - INTRACRANIAL ANEURYSM [None]
  - PITUITARY TUMOUR BENIGN [None]
